FAERS Safety Report 21285777 (Version 1)
Quarter: 2022Q3

REPORT INFORMATION
  Report Type: Report from Study
  Country: JP (occurrence: JP)
  Receive Date: 20220902
  Receipt Date: 20220902
  Transmission Date: 20221027
  Serious: Yes (Hospitalization, Other)
  Sender: FDA-Public Use
  Company Number: JP-Recordati Rare Diseases Inc.-JP-R13005-19-00114

PATIENT
  Age: 0 Year
  Sex: Male
  Weight: 1.232 kg

DRUGS (3)
  1. NEOPROFEN [Suspect]
     Active Substance: IBUPROFEN LYSINE
     Indication: Patent ductus arteriosus
     Dosage: 12 MILLIGRAM, QD
     Route: 042
     Dates: start: 20190130, end: 20190130
  2. LASIX [Concomitant]
     Active Substance: FUROSEMIDE
     Indication: Urine output decreased
     Dosage: UNK, UNK
     Route: 042
     Dates: start: 20190130, end: 20190130
  3. AMPICILLIN SODIUM [Concomitant]
     Active Substance: AMPICILLIN SODIUM
     Indication: Infection prophylaxis
     Dosage: UNK, UNK
     Route: 042
     Dates: start: 20190130, end: 20190130

REACTIONS (3)
  - Posthaemorrhagic hydrocephalus [Recovered/Resolved with Sequelae]
  - Intraventricular haemorrhage [Recovered/Resolved with Sequelae]
  - Seizure [Recovering/Resolving]

NARRATIVE: CASE EVENT DATE: 20190201
